FAERS Safety Report 4995656-9 (Version None)
Quarter: 2006Q2

REPORT INFORMATION
  Report Type: 
  Country: None (occurrence: None)
  Receive Date: 20060504
  Receipt Date: 20060426
  Transmission Date: 20061013
  Serious: Yes (Other)
  Sender: FDA-Public Use
  Company Number: 2005133943

PATIENT
  Age: 45 Year
  Sex: Female
  Weight: 74.8435 kg

DRUGS (12)
  1. BEXTRA [Suspect]
     Indication: ARTHRALGIA
     Dosage: 10 MG 1 IN 1D
     Dates: start: 20041006, end: 20041207
  2. BEXTRA [Suspect]
     Indication: FIBROMYALGIA
     Dosage: 10 MG 1 IN 1D
     Dates: start: 20041006, end: 20041207
  3. BEXTRA [Suspect]
     Indication: PAIN
     Dosage: 10 MG 1 IN 1D
     Dates: start: 20041006, end: 20041207
  4. PRILOSEC [Concomitant]
  5. IBUPROFEN [Concomitant]
  6. ASPIRIN [Concomitant]
  7. CELEBREX [Concomitant]
  8. DEMEROL [Concomitant]
  9. ACETAMINOPHEN [Concomitant]
  10. ULTRAM [Concomitant]
  11. VIOXX [Concomitant]
  12. DARVOCET [Concomitant]

REACTIONS (3)
  - BRAIN STEM INFARCTION [None]
  - CEREBROVASCULAR ACCIDENT [None]
  - ENCEPHALOMALACIA [None]
